FAERS Safety Report 7825434-4 (Version None)
Quarter: 2011Q3

REPORT INFORMATION
  Report Type: 
  Country: None (occurrence: None)
  Receive Date: 20110919
  Receipt Date: 20110902
  Transmission Date: 20111222
  Serious: Yes (Hospitalization, Other)
  Sender: FDA-Public Use
  Company Number: 19723

PATIENT
  Sex: Male
  Weight: 75.04 kg

DRUGS (11)
  1. MULTI-VITAMIN [Concomitant]
  2. PLAVIX [Concomitant]
  3. GLASSIA [Suspect]
     Indication: ALPHA-1 ANTI-TRYPSIN DEFICIENCY
     Dosage: 4500MG,ONCE A WEEK, IV
     Route: 042
     Dates: start: 20110831
  4. FLOMAX [Concomitant]
  5. SIMVASTATIN [Concomitant]
  6. ZETIA [Concomitant]
  7. SPIRIVA [Concomitant]
  8. SYMBICORT [Concomitant]
  9. ASPIRIN [Concomitant]
  10. GLUCOSAMINE [Concomitant]
  11. FISH OIL [Concomitant]

REACTIONS (4)
  - INTRAVASCULAR HAEMOLYSIS [None]
  - MALAISE [None]
  - TACHYCARDIA [None]
  - LIVER FUNCTION TEST ABNORMAL [None]
